FAERS Safety Report 6152388-1 (Version None)
Quarter: 2009Q2

REPORT INFORMATION
  Report Type: 
  Country: None (occurrence: None)
  Receive Date: 20090409
  Receipt Date: 20090325
  Transmission Date: 20091009
  Serious: Yes (Hospitalization)
  Sender: FDA-Public Use
  Company Number: 2009000796

PATIENT
  Age: 54 Year
  Sex: Female
  Weight: 78.3 kg

DRUGS (15)
  1. ERLOTINIB(ERLOTINIB) (TABLET) (ERLOTINIB) [Suspect]
     Indication: NON-SMALL CELL LUNG CANCER METASTATIC
     Dosage: (150 MG,QD),ORAL
     Route: 048
     Dates: start: 20090210
  2. ARQ 197/ PLACEBO [Suspect]
     Indication: NON-SMALL CELL LUNG CANCER METASTATIC
     Dosage: (360 MG,BID),ORAL
     Route: 048
     Dates: start: 20090210
  3. ZITHROMAX [Concomitant]
  4. ATIVAN [Concomitant]
  5. AMBIEN CR [Concomitant]
  6. TESSALON [Concomitant]
  7. FISH OIL (FISH OIL) [Concomitant]
  8. PRILOSEC [Concomitant]
  9. ADVAIR DISKUS (SERETIDE MITE) [Concomitant]
  10. B COMPLEX ELX [Concomitant]
  11. ACETAMINOPHEN [Concomitant]
  12. ACTIVA (DICLOFENAC SODIUM) [Concomitant]
  13. EFFEXOR [Concomitant]
  14. CALCIUM WITH VITAMIN D (CALCIUM WITH VITAMIN D) [Concomitant]
  15. ZOCOR [Concomitant]

REACTIONS (5)
  - HYPOAESTHESIA [None]
  - OEDEMA PERIPHERAL [None]
  - PULMONARY EMBOLISM [None]
  - THROMBOSIS [None]
  - VENOUS OCCLUSION [None]
